FAERS Safety Report 9866458 (Version 1)
Quarter: 2014Q1

REPORT INFORMATION
  Report Type: Spontaneous
  Country: US (occurrence: US)
  Receive Date: 20140204
  Receipt Date: 20140204
  Transmission Date: 20141002
  Serious: No
  Sender: FDA-Public Use
  Company Number: US-009507513-1401USA013254

PATIENT
  Sex: Male

DRUGS (1)
  1. REBETOL [Suspect]
     Dosage: UNK
     Route: 048
     Dates: start: 2001, end: 2006

REACTIONS (3)
  - Hepatitis C [Not Recovered/Not Resolved]
  - Allergy to fermented products [Unknown]
  - Drug ineffective [Unknown]
